FAERS Safety Report 25541930 (Version 1)
Quarter: 2025Q3

REPORT INFORMATION
  Report Type: Other
  Country: CA (occurrence: CA)
  Receive Date: 20250711
  Receipt Date: 20250711
  Transmission Date: 20251021
  Serious: Yes (Disabling, Other)
  Sender: APOTEX
  Company Number: CA-PGRTD-001137205

PATIENT
  Age: 89 Year
  Sex: Female
  Weight: 58 kg

DRUGS (1)
  1. CLOPIDOGREL [Suspect]
     Active Substance: CLOPIDOGREL BISULFATE
     Indication: Amaurosis fugax
     Route: 065

REACTIONS (2)
  - Blindness [Recovered/Resolved]
  - Product substitution issue [Recovered/Resolved]
